FAERS Safety Report 22175117 (Version 6)
Quarter: 2023Q2

REPORT INFORMATION
  Report Type: Report from Study
  Country: CA (occurrence: CA)
  Receive Date: 20230405
  Receipt Date: 20230622
  Transmission Date: 20230722
  Serious: Yes (Hospitalization, Other)
  Sender: FDA-Public Use
  Company Number: CA-JNJFOC-20230209461

PATIENT
  Age: 20 Year
  Sex: Female
  Weight: 52 kg

DRUGS (2)
  1. REMICADE [Suspect]
     Active Substance: INFLIXIMAB
     Indication: Colitis ulcerative
     Dosage: ON 02-FEB-2023, THE PATIENT RECEIVED HER 35 TH INFUSION WITH 400 MG DOSE OF INFLIXIMAB, RECOMBINANT
     Route: 042
     Dates: start: 20171203
  2. REMICADE [Suspect]
     Active Substance: INFLIXIMAB
     Dosage: VIAL ROUNDED UP TO 600 MG?RECEIVED DOSE ON 30-MAR-2023
     Route: 042
     Dates: start: 20230519

REACTIONS (14)
  - Haemorrhage [Unknown]
  - Gastrointestinal disorder [Not Recovered/Not Resolved]
  - Colitis ulcerative [Recovering/Resolving]
  - Pyrexia [Recovering/Resolving]
  - Infusion related reaction [Recovering/Resolving]
  - Papilloma viral infection [Unknown]
  - Asthenia [Unknown]
  - Weight decreased [Unknown]
  - Decreased appetite [Unknown]
  - Faeces soft [Unknown]
  - Fatigue [Unknown]
  - Abdominal discomfort [Not Recovered/Not Resolved]
  - Constipation [Not Recovered/Not Resolved]
  - Off label use [Unknown]

NARRATIVE: CASE EVENT DATE: 20221101
